FAERS Safety Report 8361023-3 (Version None)
Quarter: 2012Q2

REPORT INFORMATION
  Report Type: 
  Country: None (occurrence: None)
  Receive Date: 20120515
  Receipt Date: 20120504
  Transmission Date: 20120825
  Serious: Yes (Hospitalization)
  Sender: FDA-Public Use
  Company Number: AU-ROCHE-1010061

PATIENT
  Sex: Male
  Weight: 84 kg

DRUGS (12)
  1. MABTHERA [Suspect]
     Route: 042
     Dates: start: 20110720, end: 20111001
  2. ASPIRIN [Concomitant]
     Dates: start: 20020101
  3. VALACICLOVIR [Concomitant]
     Dates: start: 20060301
  4. MABTHERA [Suspect]
     Indication: CHRONIC GRAFT VERSUS HOST DISEASE
     Route: 042
     Dates: start: 20110408
  5. MABTHERA [Suspect]
     Route: 042
     Dates: start: 20111201
  6. ASPIRIN [Concomitant]
  7. BACTRIM DS [Concomitant]
     Dosage: 1 TABLET
     Dates: start: 20060101
  8. ACTONEL [Concomitant]
  9. PERINDOPRIL ERBUMINE [Concomitant]
     Dates: start: 20020101
  10. FLUCONAZOLE [Concomitant]
     Dates: start: 20060101
  11. TACROLIMUS [Concomitant]
     Dates: start: 20110913
  12. RABEPRAZOLE SODIUM [Concomitant]
     Dates: start: 20060301

REACTIONS (2)
  - BASAL CELL CARCINOMA [None]
  - SQUAMOUS CELL CARCINOMA [None]
